FAERS Safety Report 10929602 (Version 1)
Quarter: 2015Q1

REPORT INFORMATION
  Report Type: Spontaneous
  Country: US (occurrence: None)
  Receive Date: 20150317
  Receipt Date: 20150317
  Transmission Date: 20150721
  Serious: Yes (Hospitalization)
  Sender: FDA-Public Use
  Company Number: None

PATIENT
  Age: 25 Year
  Sex: Female

DRUGS (1)
  1. ESTROGEN [Suspect]
     Active Substance: ESTRONE\SUS SCROFA OVARY
     Dates: start: 20130708, end: 20130816

REACTIONS (11)
  - Blood alkaline phosphatase increased [None]
  - Nausea [None]
  - Chills [None]
  - Fatigue [None]
  - Jaundice [None]
  - Blood bilirubin increased [None]
  - Pruritus [None]
  - Vomiting [None]
  - Alanine aminotransferase increased [None]
  - Drug-induced liver injury [None]
  - Aspartate aminotransferase increased [None]

NARRATIVE: CASE EVENT DATE: 20130824
